FAERS Safety Report 19206568 (Version 2)
Quarter: 2021Q2

REPORT INFORMATION
  Report Type: Report from Study
  Country: None (occurrence: DE)
  Receive Date: 20210503
  Receipt Date: 20210513
  Transmission Date: 20210717
  Serious: Yes (Death, Other)
  Sender: FDA-Public Use
  Company Number: DE-ABBVIE-21K-062-3867900-00

PATIENT
  Age: 74 Year
  Sex: Female

DRUGS (3)
  1. QUETIAPIN [Concomitant]
     Active Substance: QUETIAPINE
     Indication: PRODUCT USED FOR UNKNOWN INDICATION
  2. DUODOPA [Suspect]
     Active Substance: CARBIDOPA\LEVODOPA
     Indication: PARKINSON^S DISEASE
     Dosage: MD 5.0 ML; CRD 4.3 ML/H; CRN 3.2 ML/H; ED 1.5 ML
     Route: 050
     Dates: start: 20200514, end: 20210411
  3. DUODOPA [Suspect]
     Active Substance: CARBIDOPA\LEVODOPA

REACTIONS (36)
  - Acute respiratory distress syndrome [Fatal]
  - Neutrophil count increased [Unknown]
  - PO2 decreased [Unknown]
  - Oxygen saturation increased [Unknown]
  - Blood glucose increased [Unknown]
  - Gamma-glutamyltransferase increased [Unknown]
  - Blood alkaline phosphatase increased [Unknown]
  - Carboxyhaemoglobin increased [Unknown]
  - Intestinal ischaemia [Fatal]
  - Calcium ionised decreased [Recovered/Resolved]
  - Blood chloride increased [Unknown]
  - Abdominal adhesions [Fatal]
  - Protein total decreased [Unknown]
  - Monocyte count decreased [Unknown]
  - Lung disorder [Unknown]
  - PO2 decreased [Recovered/Resolved]
  - Haemorrhage [Unknown]
  - PO2 increased [Unknown]
  - Calcium ionised decreased [Unknown]
  - Carboxyhaemoglobin increased [Unknown]
  - White blood cell count increased [Unknown]
  - Gastrointestinal disorder [Fatal]
  - Blood cholinesterase decreased [Unknown]
  - Blood calcium increased [Unknown]
  - Blood urea increased [Unknown]
  - Platelet count decreased [Unknown]
  - Intestinal obstruction [Not Recovered/Not Resolved]
  - Pneumonia aspiration [Fatal]
  - Septic shock [Fatal]
  - Blood bicarbonate increased [Unknown]
  - Haemoglobin decreased [Unknown]
  - Oxygen saturation decreased [Unknown]
  - Blood sodium increased [Unknown]
  - Haematocrit decreased [Unknown]
  - Eosinophil count decreased [Unknown]
  - Oxygen saturation decreased [Recovered/Resolved]

NARRATIVE: CASE EVENT DATE: 20210411
